FAERS Safety Report 8965440 (Version 1)
Quarter: 2012Q4

REPORT INFORMATION
  Report Type: 
  Country: JP (occurrence: JP)
  Receive Date: 20121213
  Receipt Date: 20121213
  Transmission Date: 20130627
  Serious: Yes (Hospitalization)
  Sender: FDA-Public Use
  Company Number: JP-BRISTOL-MYERS SQUIBB COMPANY-17136177

PATIENT
  Age: 48 Year
  Sex: Female
  Weight: 69 kg

DRUGS (2)
  1. DEPAKENE [Concomitant]
     Dates: start: 20120715, end: 20121031
  2. ABILIFY TABS [Suspect]
     Indication: SCHIZOPHRENIA
     Dosage: 3:6Aug:3mg:4D
7:9aug:3mgbid:3D
10:23Aug:3mgbid:14D
24Aug:20sep:6mgbid:28D
21Sep:31Oct12:12mg:41D
     Route: 048
     Dates: start: 20120803, end: 20121031

REACTIONS (2)
  - Stupor [Recovered/Resolved]
  - Blood creatine phosphokinase increased [Recovered/Resolved]
